FAERS Safety Report 7679106-X (Version None)
Quarter: 2011Q3

REPORT INFORMATION
  Report Type: 
  Country: None (occurrence: None)
  Receive Date: 20110812
  Receipt Date: 20110722
  Transmission Date: 20111222
  Serious: Yes (Other)
  Sender: FDA-Public Use
  Company Number: JP-NOVOPROD-331211

PATIENT

DRUGS (3)
  1. SOMATORELIN [Concomitant]
  2. ARGININE [Concomitant]
  3. NORDITROPIN [Suspect]
     Indication: PRODUCT USED FOR UNKNOWN INDICATION
     Dosage: 0.025 MG/KG/DAY

REACTIONS (1)
  - CRANIOPHARYNGIOMA [None]
